FAERS Safety Report 15436034 (Version 1)
Quarter: 2018Q3

REPORT INFORMATION
  Report Type: Spontaneous
  Country: TH (occurrence: TH)
  Receive Date: 20180927
  Receipt Date: 20180927
  Transmission Date: 20181010
  Serious: Yes (Hospitalization)
  Sender: FDA-Public Use
  Company Number: TH-MYLANLABS-2018M1070618

PATIENT
  Age: 36 Year
  Sex: Male

DRUGS (1)
  1. DEXAMETHASONE. [Suspect]
     Active Substance: DEXAMETHASONE
     Indication: TENDONITIS
     Dosage: 8 MG,
     Route: 065

REACTIONS (2)
  - Thyrotoxic periodic paralysis [Recovered/Resolved]
  - Basedow^s disease [Recovered/Resolved]
